FAERS Safety Report 7019595-7 (Version None)
Quarter: 2010Q3

REPORT INFORMATION
  Report Type: 
  Country: None (occurrence: None)
  Receive Date: 20100928
  Receipt Date: 20100928
  Transmission Date: 20110219
  Serious: No
  Sender: FDA-Public Use
  Company Number: None

PATIENT
  Age: 62 Year
  Weight: 127.0072 kg

DRUGS (1)
  1. SPIRIVA [Suspect]
     Dosage: 1 CAPSULE

REACTIONS (1)
  - INCORRECT ROUTE OF DRUG ADMINISTRATION [None]
